FAERS Safety Report 9498614 (Version 2)
Quarter: 2018Q4

REPORT INFORMATION
  Report Type: Spontaneous
  Country: US (occurrence: US)
  Receive Date: 20130904
  Receipt Date: 20181115
  Transmission Date: 20190205
  Serious: No
  Sender: FDA-Public Use
  Company Number: US-PFIZER INC-2013252683

PATIENT
  Sex: Female

DRUGS (4)
  1. CENTRUM [Suspect]
     Active Substance: VITAMINS
     Indication: POLYNEUROPATHY
     Dosage: UNK
  2. MORPHINE SULFATE. [Suspect]
     Active Substance: MORPHINE SULFATE
     Indication: POLYNEUROPATHY
     Dosage: UNK
  3. ACETAMINOPHEN. [Suspect]
     Active Substance: ACETAMINOPHEN
     Indication: POLYNEUROPATHY
     Dosage: UNK
  4. ACETAMINOPHEN AND CODEINE [Suspect]
     Active Substance: ACETAMINOPHEN\CODEINE PHOSPHATE
     Indication: POLYNEUROPATHY
     Dosage: UNK

REACTIONS (1)
  - Drug hypersensitivity [Unknown]
